FAERS Safety Report 7308405-6 (Version None)
Quarter: 2011Q1

REPORT INFORMATION
  Report Type: 
  Country: None (occurrence: None)
  Receive Date: 20110211
  Receipt Date: 20110131
  Transmission Date: 20110831
  Serious: Yes (Other)
  Sender: FDA-Public Use
  Company Number: 016506

PATIENT
  Sex: Female
  Weight: 48 kg

DRUGS (2)
  1. KEPPRA [Suspect]
     Indication: EPILEPSY
     Dosage: (750 MG BID) ; (REDUCED DOSE) ; (250 MG BID)
  2. TOPAMAX [Concomitant]

REACTIONS (1)
  - PARKINSONISM [None]
